FAERS Safety Report 8519037-6 (Version None)
Quarter: 2012Q3

REPORT INFORMATION
  Report Type: 
  Country: None (occurrence: None)
  Receive Date: 20120718
  Receipt Date: 20120712
  Transmission Date: 20120928
  Serious: Yes (Hospitalization)
  Sender: FDA-Public Use
  Company Number: PHHY2012ES060019

PATIENT
  Age: 34 Year
  Sex: Female

DRUGS (6)
  1. TACROLIMUS [Suspect]
     Indication: IMMUNOSUPPRESSION
  2. FLUCONAZOLE [Suspect]
     Indication: ANTIFUNGAL PROPHYLAXIS
     Dosage: 100 MG, DAILY
  3. VANCOMYCIN [Suspect]
     Indication: ANTIBIOTIC PROPHYLAXIS
  4. IMIPENEM [Suspect]
     Indication: ANTIBIOTIC PROPHYLAXIS
  5. CORTICOSTEROIDS [Suspect]
     Indication: IMMUNOSUPPRESSION
  6. MYCOPHENOLATE MOFETIL [Suspect]
     Indication: IMMUNOSUPPRESSION

REACTIONS (8)
  - SYSTEMIC CANDIDA [None]
  - ABDOMINAL PAIN [None]
  - GENERAL PHYSICAL HEALTH DETERIORATION [None]
  - PYREXIA [None]
  - STAPHYLOCOCCUS TEST POSITIVE [None]
  - SEPTIC SHOCK [None]
  - HAEMODYNAMIC INSTABILITY [None]
  - DYSPEPSIA [None]
